FAERS Safety Report 5913176-1 (Version None)
Quarter: 2008Q4

REPORT INFORMATION
  Report Type: 
  Country: None (occurrence: None)
  Receive Date: 20081006
  Receipt Date: 20080924
  Transmission Date: 20090506
  Serious: Yes (Death, Hospitalization)
  Sender: FDA-Public Use
  Company Number: 2008AL009540

PATIENT
  Age: 81 Year
  Sex: Female

DRUGS (14)
  1. DIGOXIN [Suspect]
     Indication: ATRIAL FIBRILLATION
     Dosage: 0.25MG, DAILY, PO
     Route: 048
     Dates: start: 20060422, end: 20060507
  2. COUMADIN [Suspect]
     Dosage: 5MG,
     Dates: start: 20060425
  3. LASIX [Concomitant]
  4. POTASSIUM CHLORIDE [Concomitant]
  5. CARDIZEM CR [Concomitant]
  6. PACERONE [Concomitant]
  7. FOLIC ACID [Concomitant]
  8. COUMADIN [Concomitant]
  9. ZOCOR [Concomitant]
  10. FOLATE [Concomitant]
  11. LORTAB [Concomitant]
  12. COLACE [Concomitant]
  13. AMBIEN [Concomitant]
  14. MULTI-VITAMIN [Concomitant]

REACTIONS (9)
  - ATRIAL FIBRILLATION [None]
  - CEREBRAL HAEMORRHAGE [None]
  - DRUG TOXICITY [None]
  - DYSPNOEA [None]
  - MALAISE [None]
  - OEDEMA PERIPHERAL [None]
  - RENAL FAILURE [None]
  - SEPTIC SHOCK [None]
  - SOMNOLENCE [None]
